FAERS Safety Report 7383292-9 (Version None)
Quarter: 2011Q1

REPORT INFORMATION
  Report Type: 
  Country: None (occurrence: None)
  Receive Date: 20110330
  Receipt Date: 20110325
  Transmission Date: 20110831
  Serious: Yes (Death)
  Sender: FDA-Public Use
  Company Number: JP-BRISTOL-MYERS SQUIBB COMPANY-15641111

PATIENT
  Age: 30 Month
  Sex: Male

DRUGS (4)
  1. CYCLOPHOSPHAMIDE [Suspect]
  2. DAUNORUBICIN HCL [Suspect]
  3. ONCASPAR [Suspect]
  4. PREDNISOLONE [Suspect]
     Dosage: 3-DAY COURSE ; AND ALSO 21DAYS

REACTIONS (1)
  - DEATH [None]
